FAERS Safety Report 5926973-3 (Version None)
Quarter: 2008Q4

REPORT INFORMATION
  Report Type: 
  Country: None (occurrence: None)
  Receive Date: 20081022
  Receipt Date: 20081013
  Transmission Date: 20090506
  Serious: Yes (Other)
  Sender: FDA-Public Use
  Company Number: GB-ROCHE-587787

PATIENT
  Age: 43 Year
  Sex: Male
  Weight: 72 kg

DRUGS (2)
  1. PEGASYS [Suspect]
     Route: 058
     Dates: start: 20080528
  2. COPEGUS [Suspect]
     Route: 048
     Dates: start: 20080528

REACTIONS (1)
  - GINGIVAL RECESSION [None]
